FAERS Safety Report 8929410 (Version 1)
Quarter: 2012Q4

REPORT INFORMATION
  Report Type: Spontaneous
  Country: US (occurrence: None)
  Receive Date: 20121119
  Receipt Date: 20121119
  Transmission Date: 20130627
  Serious: Yes (Hospitalization)
  Sender: FDA-Public Use
  Company Number: US-009611

PATIENT
  Age: 70 Year
  Sex: Male

DRUGS (1)
  1. DEGARELIX [Suspect]
     Indication: PROSTATE CANCER
     Dates: start: 20111115

REACTIONS (5)
  - Cellulitis [None]
  - Injection site cellulitis [None]
  - Injection site nodule [None]
  - Pain [None]
  - Injection site scar [None]
